FAERS Safety Report 20992956 (Version 1)
Quarter: 2022Q2

REPORT INFORMATION
  Report Type: Spontaneous
  Country: US (occurrence: US)
  Receive Date: 20220622
  Receipt Date: 20220622
  Transmission Date: 20220721
  Serious: No
  Sender: FDA-Public Use
  Company Number: US-BRISTOL-MYERS SQUIBB COMPANY-2022-062174

PATIENT
  Age: 71 Year
  Sex: Male
  Weight: 92.53 kg

DRUGS (10)
  1. REVLIMID [Suspect]
     Active Substance: LENALIDOMIDE
     Indication: Plasma cell myeloma
     Dosage: FREQ - 14/21
     Dates: start: 20220111
  2. REVLIMID [Suspect]
     Active Substance: LENALIDOMIDE
     Route: 048
     Dates: start: 20220512, end: 20220601
  3. REVLIMID [Suspect]
     Active Substance: LENALIDOMIDE
     Route: 048
     Dates: start: 20220601, end: 20220613
  4. REVLIMID [Suspect]
     Active Substance: LENALIDOMIDE
     Route: 048
     Dates: start: 20220613
  5. ELIQUIS [Concomitant]
     Active Substance: APIXABAN
     Indication: Plasma cell myeloma
     Route: 048
     Dates: start: 20220107
  6. DEXAMETHASONE [Concomitant]
     Active Substance: DEXAMETHASONE
     Indication: Plasma cell myeloma
     Dosage: WEEKLY-FREQ?DI REV/DEX NOTED;MEDS INDICATED TOGETHER.
     Route: 048
     Dates: start: 20220107
  7. LIPITOR [Concomitant]
     Active Substance: ATORVASTATIN CALCIUM
     Indication: Plasma cell myeloma
     Route: 048
     Dates: start: 20220107
  8. FISH OIL [Concomitant]
     Active Substance: FISH OIL
     Indication: Plasma cell myeloma
     Route: 048
     Dates: start: 20220107
  9. ACYCLOVIR [Concomitant]
     Active Substance: ACYCLOVIR
     Indication: Plasma cell myeloma
     Route: 048
     Dates: start: 20220107
  10. VELCADE [Concomitant]
     Active Substance: BORTEZOMIB
     Indication: Plasma cell myeloma
     Route: 048
     Dates: start: 20220309

REACTIONS (1)
  - Rash [Unknown]

NARRATIVE: CASE EVENT DATE: 20220610
